FAERS Safety Report 19168002 (Version 1)
Quarter: 2021Q2

REPORT INFORMATION
  Report Type: Spontaneous
  Country: US (occurrence: US)
  Receive Date: 20210422
  Receipt Date: 20210422
  Transmission Date: 20210717
  Serious: Yes (Other)
  Sender: FDA-Public Use
  Company Number: US-MICRO LABS LIMITED-ML2021-01157

PATIENT
  Age: 74 Year
  Sex: Female
  Weight: 102 kg

DRUGS (11)
  1. APIXABAN [Suspect]
     Active Substance: APIXABAN
     Indication: DEEP VEIN THROMBOSIS
     Dosage: APIXABAN (10 MG TWICE DAILY FOR 7 DAYS,THEN 5 MG TWICE DAILY FOR 3 MONTHS) WAS PRESCRIBED
  2. GABAPENTIN. [Concomitant]
     Active Substance: GABAPENTIN
     Dosage: 200 MG DAILY IN THE MORNING AND AT NOON
  3. GABAPENTIN. [Concomitant]
     Active Substance: GABAPENTIN
     Dosage: 400 MG DAILY IN THE EVENING
  4. PANTOPRAZOLE [Concomitant]
     Active Substance: PANTOPRAZOLE
  5. CLOPIDOGREL [Concomitant]
     Active Substance: CLOPIDOGREL BISULFATE
  6. ATENOLOL. [Concomitant]
     Active Substance: ATENOLOL
  7. PRAMIPEXOLE. [Concomitant]
     Active Substance: PRAMIPEXOLE
  8. CALCIUM/ VITAMIN D [Concomitant]
     Dosage: 500 MG/200 UNITS TWICE DAILY
  9. APIXABAN [Suspect]
     Active Substance: APIXABAN
     Dosage: APIXABAN (10 MG TWICE DAILY FOR 7 DAYS,THEN 5 MG TWICE DAILY FOR 3 MONTHS) WAS PRESCRIBED
  10. LEVOTHYROXINE SODIUM. [Concomitant]
     Active Substance: LEVOTHYROXINE SODIUM
  11. TIZANIDINE. [Concomitant]
     Active Substance: TIZANIDINE

REACTIONS (1)
  - Cutaneous vasculitis [Recovering/Resolving]
